FAERS Safety Report 7363916-2 (Version None)
Quarter: 2011Q1

REPORT INFORMATION
  Report Type: 
  Country: None (occurrence: None)
  Receive Date: 20110321
  Receipt Date: 20110112
  Transmission Date: 20110831
  Serious: No
  Sender: FDA-Public Use
  Company Number: US-BAYER-2011-004448

PATIENT
  Age: 72 Year
  Sex: Male

DRUGS (3)
  1. ALEVE (CAPLET) [Suspect]
     Indication: MYALGIA
  2. ALEVE (CAPLET) [Suspect]
     Indication: ARTHRALGIA
  3. ALEVE (CAPLET) [Suspect]
     Indication: HEADACHE

REACTIONS (1)
  - HEADACHE [None]
